FAERS Safety Report 5690085-7 (Version None)
Quarter: 2008Q1

REPORT INFORMATION
  Report Type: 
  Country: None (occurrence: None)
  Receive Date: 20080331
  Receipt Date: 20080331
  Transmission Date: 20080703
  Serious: Yes (Other)
  Sender: FDA-Public Use
  Company Number: None

PATIENT
  Sex: Female
  Weight: 22.6799 kg

DRUGS (2)
  1. SINGULAIR [Suspect]
     Indication: ASTHMA
     Dosage: 5MG QHS PO 2.5 MG TO WEAN
     Route: 048
     Dates: start: 20020101, end: 20080328
  2. SINGULAIR [Suspect]
     Indication: ASTHMA
     Dosage: 5MG QHS PO 2.5 MG TO WEAN
     Route: 048
     Dates: start: 20080328, end: 20080330

REACTIONS (4)
  - ABNORMAL DREAMS [None]
  - AGGRESSION [None]
  - EMOTIONAL DISORDER [None]
  - PSYCHOTIC DISORDER [None]
